FAERS Safety Report 8829691 (Version 1)
Quarter: 2012Q4

REPORT INFORMATION
  Report Type: 
  Country: AU (occurrence: AU)
  Receive Date: 20121008
  Receipt Date: 20121008
  Transmission Date: 20130627
  Serious: Yes (Other)
  Sender: FDA-Public Use
  Company Number: AU-ROCHE-1142710

PATIENT
  Sex: Female

DRUGS (6)
  1. HERCEPTIN [Suspect]
     Indication: BREAST CANCER
     Route: 065
  2. XELODA [Suspect]
     Indication: BREAST CANCER
     Route: 065
  3. TAXOTERE [Concomitant]
  4. VINORELBINE [Concomitant]
  5. TYKERB [Concomitant]
  6. DOXORUBICIN [Concomitant]

REACTIONS (1)
  - Disease progression [Unknown]
